FAERS Safety Report 7822720-9 (Version None)
Quarter: 2011Q4

REPORT INFORMATION
  Report Type: 
  Country: None (occurrence: None)
  Receive Date: 20111018
  Receipt Date: 20111006
  Transmission Date: 20120403
  Serious: Yes (Life-Threatening, Hospitalization)
  Sender: FDA-Public Use
  Company Number: US-ROCHE-792333

PATIENT
  Sex: Male
  Weight: 66 kg

DRUGS (1)
  1. ACTEMRA [Suspect]
     Indication: RHEUMATOID ARTHRITIS
     Dosage: FORM:INFUSION,HISTROY OF 4 MOST RECENT INFUSION PRIOR TO EVENT
     Route: 042

REACTIONS (8)
  - HYPOTENSION [None]
  - ACUTE RESPIRATORY FAILURE [None]
  - PLEURAL EFFUSION [None]
  - RENAL FAILURE [None]
  - PNEUMONIA [None]
  - SERRATIA TEST POSITIVE [None]
  - CARDIAC TAMPONADE [None]
  - GASTROINTESTINAL HAEMORRHAGE [None]
